FAERS Safety Report 25562081 (Version 1)
Quarter: 2025Q3

REPORT INFORMATION
  Report Type: Spontaneous
  Country: CA (occurrence: CA)
  Receive Date: 20250716
  Receipt Date: 20250716
  Transmission Date: 20251021
  Serious: Yes (Hospitalization, Other)
  Sender: GLAXOSMITHKLINE
  Company Number: CA-GSK-CA2025AMR085151

PATIENT
  Age: 22 Year
  Sex: Female

DRUGS (5)
  1. LAMOTRIGINE [Suspect]
     Active Substance: LAMOTRIGINE
     Indication: Product used for unknown indication
  2. CYCLOSPORINE [Suspect]
     Active Substance: CYCLOSPORINE
     Indication: Stevens-Johnson syndrome
     Dosage: 1.5 ML, QD (2 EVERY 1 DAY)
  3. CYCLOSPORINE [Suspect]
     Active Substance: CYCLOSPORINE
     Dosage: 5 MG/KG, QD (1 EVERY 1 DAY)
  4. ERELZI [Suspect]
     Active Substance: ETANERCEPT-SZZS
     Indication: Stevens-Johnson syndrome
  5. IMMUNE GLOBULIN NOS [Suspect]
     Active Substance: IMMUNE GLOBULIN NOS
     Indication: Stevens-Johnson syndrome

REACTIONS (7)
  - Stevens-Johnson syndrome [Recovered/Resolved]
  - Overlap syndrome [Recovering/Resolving]
  - Condition aggravated [Recovered/Resolved]
  - Drug reaction with eosinophilia and systemic symptoms [Recovered/Resolved]
  - Off label use [Recovered/Resolved]
  - Product ineffective [Recovering/Resolving]
  - Drug ineffective for unapproved indication [Recovered/Resolved]
